FAERS Safety Report 24857822 (Version 1)
Quarter: 2025Q1

REPORT INFORMATION
  Report Type: Other
  Country: US (occurrence: US)
  Receive Date: 20250117
  Receipt Date: 20250117
  Transmission Date: 20250409
  Serious: No
  Sender: TRAVERE THERAPEUTICS
  Company Number: US-TRAVERE-2024TVT01331

PATIENT
  Age: 32 Year
  Sex: Male

DRUGS (7)
  1. FILSPARI [Suspect]
     Active Substance: SPARSENTAN
     Indication: Product used for unknown indication
     Route: 048
     Dates: start: 20241129
  2. VITAMIN C [Concomitant]
     Active Substance: ASCORBIC ACID
  3. ENTYVIO [Concomitant]
     Active Substance: VEDOLIZUMAB
  4. BREO ELLIPTA [Concomitant]
     Active Substance: FLUTICASONE FUROATE\VILANTEROL TRIFENATATE
  5. VITAMIN D3 [Concomitant]
     Active Substance: CHOLECALCIFEROL
  6. FISH OIL\OMEGA-3 FATTY ACIDS [Concomitant]
     Active Substance: FISH OIL\OMEGA-3 FATTY ACIDS
  7. HERBALS\TURMERIC [Concomitant]
     Active Substance: HERBALS\TURMERIC

REACTIONS (8)
  - Abdominal pain upper [Unknown]
  - Headache [Unknown]
  - Vision blurred [Unknown]
  - Chest pain [Unknown]
  - Fatigue [Unknown]
  - Depressed mood [Unknown]
  - Asthma [Unknown]
  - Nausea [Unknown]

NARRATIVE: CASE EVENT DATE: 20241218
